FAERS Safety Report 8992407 (Version 1)
Quarter: 2012Q4

REPORT INFORMATION
  Report Type: 
  Country: FR (occurrence: FR)
  Receive Date: 20121231
  Receipt Date: 20121231
  Transmission Date: 20130627
  Serious: Yes (Death, Hospitalization, Other)
  Sender: FDA-Public Use
  Company Number: FR-BRISTOL-MYERS SQUIBB COMPANY-17236282

PATIENT
  Age: 93 Year
  Sex: Female

DRUGS (13)
  1. COUMADINE [Suspect]
     Route: 048
     Dates: start: 20120419, end: 20120423
  2. LOVENOX [Suspect]
     Dosage: Form: 4000 IU anti-Xa/0.4 ml, solution for injection in pre-filled syringe
     Route: 058
     Dates: start: 20120408
  3. LASILIX [Concomitant]
     Dosage: Morning
  4. DIFFU-K [Concomitant]
  5. PROZAC [Concomitant]
  6. MEPRONIZINE [Concomitant]
     Dosage: 1 df= 1 tab in evening
  7. DAONIL [Concomitant]
  8. LOXEN [Concomitant]
  9. DETENSIEL [Concomitant]
  10. CALCIDOSE [Concomitant]
     Dosage: 1 df= 1 sachet
  11. LOPERAMIDE [Concomitant]
     Indication: DIARRHOEA
  12. SPASFON [Concomitant]
     Indication: DIARRHOEA
  13. DAFALGAN [Concomitant]

REACTIONS (3)
  - Shock haemorrhagic [Fatal]
  - Urosepsis [Unknown]
  - Overdose [Unknown]
